FAERS Safety Report 9745735 (Version 2)
Quarter: 2014Q3

REPORT INFORMATION
  Report Type: Spontaneous
  Country: US (occurrence: US)
  Receive Date: 20131211
  Receipt Date: 20140819
  Transmission Date: 20150326
  Serious: Yes (Hospitalization, Other)
  Sender: FDA-Public Use
  Company Number: US-009507513-1312USA004582

PATIENT
  Sex: Female
  Weight: 80.73 kg

DRUGS (1)
  1. NUVARING [Suspect]
     Active Substance: ETHINYL ESTRADIOL\ETONOGESTREL
     Indication: PRODUCT USED FOR UNKNOWN INDICATION
     Dosage: UNK UNK, QM
     Route: 067
     Dates: start: 20040911, end: 20101019

REACTIONS (15)
  - Deep vein thrombosis [Unknown]
  - Pulmonary embolism [Unknown]
  - Hypertension [Unknown]
  - Thyroidectomy [Unknown]
  - Hypercoagulation [Unknown]
  - Iron deficiency anaemia [Unknown]
  - Atrial flutter [Recovered/Resolved]
  - Atrial fibrillation [Recovered/Resolved]
  - Dysfunctional uterine bleeding [Unknown]
  - Fibromyalgia [Unknown]
  - Pulmonary embolism [Unknown]
  - Papillary thyroid cancer [Unknown]
  - Endometrial ablation [Unknown]
  - Hypothyroidism [Unknown]
  - Pneumonia [Unknown]

NARRATIVE: CASE EVENT DATE: 2009
